FAERS Safety Report 7157351-X (Version None)
Quarter: 2010Q4

REPORT INFORMATION
  Report Type: 
  Country: None (occurrence: None)
  Receive Date: 20101214
  Receipt Date: 20101207
  Transmission Date: 20110411
  Serious: No
  Sender: FDA-Public Use
  Company Number: US-PFIZER INC-2010166481

PATIENT
  Sex: Female
  Weight: 68 kg

DRUGS (2)
  1. SUTENT [Suspect]
     Indication: MYALGIA
     Dosage: 50 MG, 1X/DAY
     Route: 048
  2. SUTENT [Suspect]
     Indication: PAIN

REACTIONS (2)
  - BONE PAIN [None]
  - MYALGIA [None]
